FAERS Safety Report 23069870 (Version 3)
Quarter: 2023Q4

REPORT INFORMATION
  Report Type: Spontaneous
  Country: US (occurrence: US)
  Receive Date: 20231016
  Receipt Date: 20231130
  Transmission Date: 20240109
  Serious: No
  Sender: FDA-Public Use
  Company Number: US-BAYER-2023A142964

PATIENT
  Age: 9 Year
  Sex: Male

DRUGS (1)
  1. KOVALTRY [Suspect]
     Active Substance: ANTIHEMOPHILIC FACTOR, HUMAN RECOMBINANT
     Indication: Limb injury
     Dosage: 1500 U
     Route: 042

REACTIONS (2)
  - Limb injury [None]
  - Tooth extraction [None]

NARRATIVE: CASE EVENT DATE: 20231005
